FAERS Safety Report 7835735-1 (Version None)
Quarter: 2011Q4

REPORT INFORMATION
  Report Type: 
  Country: None (occurrence: None)
  Receive Date: 20111024
  Receipt Date: 20111020
  Transmission Date: 20120403
  Serious: Yes (Other)
  Sender: FDA-Public Use
  Company Number: JP-PFIZER INC-2011231872

PATIENT
  Age: 63 Year
  Sex: Female

DRUGS (2)
  1. LYRICA [Suspect]
     Dosage: 25MG
     Route: 048
     Dates: start: 20110914
  2. HALCION [Suspect]
     Dosage: 0.25MG DAILY
     Route: 048

REACTIONS (3)
  - NERVOUSNESS [None]
  - COGNITIVE DISORDER [None]
  - ABNORMAL BEHAVIOUR [None]
